FAERS Safety Report 5030339-0 (Version None)
Quarter: 2006Q2

REPORT INFORMATION
  Report Type: 
  Country: None (occurrence: None)
  Receive Date: 20060620
  Receipt Date: 20050420
  Transmission Date: 20061013
  Serious: Yes (Other)
  Sender: FDA-Public Use
  Company Number: JP-ROCHE-402760

PATIENT
  Age: 74 Year
  Sex: Female
  Weight: 42 kg

DRUGS (11)
  1. TAMIFLU [Suspect]
     Route: 048
     Dates: start: 20050211, end: 20050213
  2. TAMIFLU [Suspect]
     Route: 048
     Dates: start: 20050214, end: 20050214
  3. URSODESOXYCHOLIC ACID [Concomitant]
     Dosage: DRUG NAME: REPTOR
     Route: 048
     Dates: start: 20040317
  4. TOCOPHEROL CONCENTRATE CAP [Concomitant]
     Dosage: DRUG NAME: NICHI E NATE
     Route: 048
     Dates: start: 20040317
  5. SEVEN E-P [Concomitant]
     Route: 048
     Dates: start: 20040317
  6. GLORIAMIN [Concomitant]
     Route: 048
     Dates: start: 20040317
  7. NEUROVITAN [Concomitant]
     Route: 048
     Dates: start: 20040823
  8. FLOMOX [Concomitant]
     Route: 048
     Dates: start: 20050209, end: 20050212
  9. HUSCODE [Concomitant]
     Route: 048
     Dates: start: 20050209, end: 20050212
  10. HUSCODE [Concomitant]
     Route: 048
     Dates: start: 20050212, end: 20050214
  11. EPINASTINE HYDROCHLORIDE [Concomitant]
     Dosage: DRUG NAME: ALEROFF
     Route: 048
     Dates: start: 20050214, end: 20050219

REACTIONS (3)
  - DIARRHOEA [None]
  - MELAENA [None]
  - URTICARIA [None]
